FAERS Safety Report 19661003 (Version 1)
Quarter: 2021Q3

REPORT INFORMATION
  Report Type: Report from Study
  Country: US (occurrence: US)
  Receive Date: 20210805
  Receipt Date: 20210805
  Transmission Date: 20211014
  Serious: No
  Sender: FDA-Public Use
  Company Number: US-LUNDBECK-DKLU3036367

PATIENT
  Age: 41 Year
  Sex: Female

DRUGS (1)
  1. VYEPTI [Suspect]
     Active Substance: EPTINEZUMAB-JJMR
     Indication: MIGRAINE
     Route: 041
     Dates: start: 20210601

REACTIONS (3)
  - Migraine [Not Recovered/Not Resolved]
  - Increased appetite [Unknown]
  - Headache [Unknown]

NARRATIVE: CASE EVENT DATE: 20210601
